FAERS Safety Report 8522594-7 (Version None)
Quarter: 2012Q3

REPORT INFORMATION
  Report Type: 
  Country: None (occurrence: None)
  Receive Date: 20120719
  Receipt Date: 20120706
  Transmission Date: 20120928
  Serious: No
  Sender: FDA-Public Use
  Company Number: US-ASTRAZENECA-2012SE46587

PATIENT
  Age: 69 Year
  Sex: Female
  Weight: 56.7 kg

DRUGS (9)
  1. NEXIUM [Suspect]
     Route: 048
  2. VITAMIN B-12 [Concomitant]
  3. TREMARIN [Concomitant]
  4. PLAVIX [Concomitant]
  5. DUTOPROL [Suspect]
     Route: 048
  6. HYDROCODONE/AZETAMINOPHINE [Concomitant]
     Indication: PAIN
  7. ZETIA [Concomitant]
  8. DIOVAN [Concomitant]
  9. NEXIUM [Suspect]
     Indication: GASTROOESOPHAGEAL REFLUX DISEASE
     Route: 048

REACTIONS (5)
  - CHRONIC OBSTRUCTIVE PULMONARY DISEASE [None]
  - DIARRHOEA [None]
  - CLOSTRIDIAL INFECTION [None]
  - BODY HEIGHT DECREASED [None]
  - OFF LABEL USE [None]
